FAERS Safety Report 20837800 (Version 1)
Quarter: 2022Q2

REPORT INFORMATION
  Report Type: Spontaneous
  Country: US (occurrence: US)
  Receive Date: 20220517
  Receipt Date: 20220517
  Transmission Date: 20220720
  Serious: No
  Sender: FDA-Public Use
  Company Number: US-009507513-2204USA006992

PATIENT
  Sex: Male

DRUGS (1)
  1. KEYTRUDA [Suspect]
     Active Substance: PEMBROLIZUMAB
     Indication: Malignant melanoma stage IV
     Dosage: UNK, EVERY 3 WEEKS
     Route: 042
     Dates: start: 202104

REACTIONS (2)
  - Rash vesicular [Not Recovered/Not Resolved]
  - Skin lesion [Unknown]
